FAERS Safety Report 19161846 (Version 1)
Quarter: 2021Q2

REPORT INFORMATION
  Report Type: Spontaneous
  Country: US (occurrence: US)
  Receive Date: 20210421
  Receipt Date: 20210421
  Transmission Date: 20210717
  Serious: Yes (Hospitalization, Other)
  Sender: FDA-Public Use
  Company Number: US-AUROBINDO-AUR-APL-2021-016163

PATIENT
  Age: 24 Month
  Sex: Male

DRUGS (13)
  1. MESNA. [Suspect]
     Active Substance: MESNA
     Indication: NEUROBLASTOMA
     Dosage: CYCLICAL, INDUCTION CYCLE 4
     Route: 065
  2. UNITUXIN [Suspect]
     Active Substance: DINUTUXIMAB
     Indication: NEUROBLASTOMA
     Dosage: CYCLICAL
     Route: 042
  3. UNITUXIN [Suspect]
     Active Substance: DINUTUXIMAB
     Dosage: 2.5 ML/HR, CYCLICAL
     Route: 041
  4. CYCLOPHOSPHAMIDE. [Suspect]
     Active Substance: CYCLOPHOSPHAMIDE
     Indication: NEUROBLASTOMA
     Dosage: CYCLICAL, INDUCTION CYCLE 4
     Route: 065
  5. UNITUXIN [Suspect]
     Active Substance: DINUTUXIMAB
     Dosage: CYCLICAL (CYCLE 4)
     Route: 041
  6. DOXORUBICIN HCL [Suspect]
     Active Substance: DOXORUBICIN HYDROCHLORIDE
     Indication: NEUROBLASTOMA
     Dosage: CYCLICAL, INDUCTION CYCLE 4
     Route: 065
  7. CISPLATIN. [Suspect]
     Active Substance: CISPLATIN
     Indication: NEUROBLASTOMA
     Dosage: CYCLICAL, INDUCTION CYCLE 5
     Route: 065
  8. DINUTUXIMAB [Suspect]
     Active Substance: DINUTUXIMAB
     Indication: NEUROBLASTOMA
     Dosage: CYCLICAL (2 CYCLES)
     Route: 065
  9. VINCRISTINE SULFATE. [Suspect]
     Active Substance: VINCRISTINE SULFATE
     Indication: NEUROBLASTOMA
     Dosage: CYCLICAL, INDUCTION CYCLE 4
     Route: 065
  10. UNITUXIN [Suspect]
     Active Substance: DINUTUXIMAB
     Dosage: CYCLICAL (CYCLE 5)
     Route: 041
  11. ETOPOSIDE. [Suspect]
     Active Substance: ETOPOSIDE
     Indication: NEUROBLASTOMA
     Dosage: CYCLICAL, INDUCTION CYCLE 5
     Route: 065
  12. DEXRAZOXANE. [Suspect]
     Active Substance: DEXRAZOXANE
     Indication: NEUROBLASTOMA
     Dosage: CYCLICAL, INDUCTION CYCLE 4
     Route: 065
  13. SARGRAMOSTIM [Suspect]
     Active Substance: SARGRAMOSTIM
     Indication: NEUROBLASTOMA
     Dosage: CYCLICAL, INDUCTION CYCLE 4
     Route: 065

REACTIONS (4)
  - Pyrexia [Unknown]
  - Therapy partial responder [Unknown]
  - Drug hypersensitivity [Unknown]
  - Hypotension [Unknown]
